FAERS Safety Report 15060768 (Version 2)
Quarter: 2018Q3

REPORT INFORMATION
  Report Type: Spontaneous
  Country: BR (occurrence: BR)
  Receive Date: 20180625
  Receipt Date: 20180710
  Transmission Date: 20181010
  Serious: Yes (Other)
  Sender: FDA-Public Use
  Company Number: BR-ALEXION PHARMACEUTICALS INC.-A201804976

PATIENT
  Age: 31 Year
  Sex: Female

DRUGS (3)
  1. SOLIRIS [Suspect]
     Active Substance: ECULIZUMAB
     Dosage: 900 MG, Q2W
     Route: 042
     Dates: start: 20170324
  2. SOLIRIS [Suspect]
     Active Substance: ECULIZUMAB
     Indication: PAROXYSMAL NOCTURNAL HAEMOGLOBINURIA
     Dosage: 600 MG, QW
     Route: 042
     Dates: start: 20170227, end: 20170317
  3. SOLIRIS [Suspect]
     Active Substance: ECULIZUMAB
     Dosage: 900 MG, Q2W
     Route: 042

REACTIONS (7)
  - Premature separation of placenta [Recovered/Resolved]
  - Pain in extremity [Unknown]
  - Inappropriate schedule of drug administration [Recovered/Resolved]
  - Abdominal pain [Unknown]
  - Exposure during pregnancy [Recovered/Resolved]
  - Asthenia [Unknown]
  - Haemolysis [Unknown]

NARRATIVE: CASE EVENT DATE: 20171107
